FAERS Safety Report 10763012 (Version 4)
Quarter: 2015Q4

REPORT INFORMATION
  Report Type: Report from Study
  Country: FR (occurrence: FR)
  Receive Date: 20150204
  Receipt Date: 20151007
  Transmission Date: 20160304
  Serious: Yes (Death, Other)
  Sender: FDA-Public Use
  Company Number: FR-ASTELLAS-2015US003358

PATIENT
  Age: 65 Year
  Sex: Female
  Weight: 56 kg

DRUGS (12)
  1. NEORAL [Suspect]
     Active Substance: CYCLOSPORINE
     Route: 048
     Dates: start: 20141009, end: 20141013
  2. NEORAL [Suspect]
     Active Substance: CYCLOSPORINE
     Route: 048
     Dates: start: 20141013, end: 20141013
  3. MICAFUNGIN [Suspect]
     Active Substance: MICAFUNGIN
     Indication: ANTIFUNGAL PROPHYLAXIS
     Route: 065
     Dates: start: 20140918, end: 20141013
  4. NEORAL [Suspect]
     Active Substance: CYCLOSPORINE
     Dosage: ??
  5. SOLU-MEDROL [Concomitant]
     Active Substance: METHYLPREDNISOLONE SODIUM SUCCINATE
     Indication: PROPHYLAXIS
     Dosage: 60 MG/24 HOURS
     Route: 042
     Dates: start: 20140918, end: 20141015
  6. NEORAL [Suspect]
     Active Substance: CYCLOSPORINE
     Route: 048
     Dates: start: 20141003, end: 20141006
  7. LEDERFOLINE [Concomitant]
     Active Substance: LEUCOVORIN CALCIUM
     Route: 048
     Dates: start: 20141002, end: 20141015
  8. LEDERFOLINE [Concomitant]
     Active Substance: LEUCOVORIN CALCIUM
     Indication: PROPHYLAXIS
     Route: 048
     Dates: start: 20140926, end: 20141001
  9. NEORAL [Suspect]
     Active Substance: CYCLOSPORINE
     Indication: PROPHYLAXIS
     Dosage: UNK, UNKNOWN FREQ.
     Route: 065
     Dates: start: 20140415, end: 20140917
  10. ZELITREX [Concomitant]
     Active Substance: VALACYCLOVIR HYDROCHLORIDE
     Indication: INFECTION PROPHYLAXIS
     Route: 048
     Dates: start: 201310, end: 20140920
  11. INEXIUM                            /01479302/ [Concomitant]
     Active Substance: ESOMEPRAZOLE MAGNESIUM
     Indication: PROPHYLAXIS AGAINST GASTROINTESTINAL ULCER
     Route: 048
     Dates: start: 201310, end: 20141015
  12. NEORAL [Suspect]
     Active Substance: CYCLOSPORINE
     Route: 048
     Dates: start: 20141006, end: 20141009

REACTIONS (26)
  - Respiratory disorder [Not Recovered/Not Resolved]
  - Bacterial infection [Recovered/Resolved]
  - Vomiting [Recovered/Resolved]
  - Drug ineffective [Unknown]
  - Coma [Fatal]
  - Micturition disorder [Not Recovered/Not Resolved]
  - Eye infection fungal [Not Recovered/Not Resolved]
  - Insomnia [Not Recovered/Not Resolved]
  - Pancytopenia [Not Recovered/Not Resolved]
  - Thrombotic microangiopathy [Unknown]
  - Pain [Not Recovered/Not Resolved]
  - Multi-organ failure [Fatal]
  - Ear pain [Recovered/Resolved]
  - Pyrexia [Recovered/Resolved]
  - Adverse event [Unknown]
  - Haematuria [Recovered/Resolved]
  - Anxiety [Not Recovered/Not Resolved]
  - Pyrexia [Recovered/Resolved]
  - Pyrexia [Recovered/Resolved]
  - Cytomegalovirus infection [Recovered/Resolved]
  - Epstein-Barr virus infection [Recovered/Resolved]
  - Hypophosphataemia [Recovered/Resolved]
  - Infection [Unknown]
  - Nausea [Recovered/Resolved]
  - Seizure [Recovered/Resolved with Sequelae]
  - Anaemia [Unknown]

NARRATIVE: CASE EVENT DATE: 20140918
